FAERS Safety Report 5710086-X (Version None)
Quarter: 2008Q2

REPORT INFORMATION
  Report Type: 
  Country: None (occurrence: None)
  Receive Date: 20080418
  Receipt Date: 20080411
  Transmission Date: 20081010
  Serious: Yes (Hospitalization, Other)
  Sender: FDA-Public Use
  Company Number: BR-PFIZER INC-2007049510

PATIENT
  Sex: Female
  Weight: 70 kg

DRUGS (6)
  1. CELEBRA [Suspect]
     Indication: DYSARTHRIA
     Route: 048
  2. CELEBRA [Suspect]
     Indication: ARTHRALGIA
  3. DOSTINEX [Concomitant]
     Route: 048
  4. CALCIUM [Concomitant]
  5. ALENDRONATE SODIUM [Concomitant]
  6. DRUG, UNSPECIFIED [Concomitant]

REACTIONS (4)
  - DRUG INEFFECTIVE [None]
  - FALL [None]
  - FEMUR FRACTURE [None]
  - THYROID NEOPLASM [None]
